FAERS Safety Report 7496281-0 (Version None)
Quarter: 2011Q2

REPORT INFORMATION
  Report Type: 
  Country: None (occurrence: None)
  Receive Date: 20110520
  Receipt Date: 20110520
  Transmission Date: 20111010
  Serious: Yes (Other)
  Sender: FDA-Public Use
  Company Number: None

PATIENT
  Sex: Female
  Weight: 65.9 kg

DRUGS (1)
  1. CLARAVIS [Suspect]
     Indication: ACNE
     Dosage: 30MG BID 047
     Dates: start: 20110422, end: 20110517

REACTIONS (2)
  - ERYTHEMA [None]
  - NODULE [None]
